FAERS Safety Report 5174722-1 (Version None)
Quarter: 2006Q4

REPORT INFORMATION
  Report Type: 
  Country: None (occurrence: None)
  Receive Date: 20061206
  Receipt Date: 20061129
  Transmission Date: 20070319
  Serious: Yes (Other)
  Sender: FDA-Public Use
  Company Number: 2006140841

PATIENT
  Age: 43 Year
  Sex: Female

DRUGS (5)
  1. ALPRAZOLAM [Suspect]
     Dosage: 1.2 MG, ORAL
     Route: 048
     Dates: end: 20060101
  2. DOGMATYL (SULPIRIDE) [Concomitant]
  3. DEPAS (ETIZOLAM) [Concomitant]
  4. ZOLPIDEM TARTRATE [Concomitant]
  5. TOLEDOMIN (MILNACIPRAN HYDROCHLORIDE) [Concomitant]

REACTIONS (2)
  - DELUSION [None]
  - TREMOR [None]
